FAERS Safety Report 10508829 (Version 1)
Quarter: 2014Q4

REPORT INFORMATION
  Report Type: Spontaneous
  Country: SE (occurrence: None)
  Receive Date: 20141008
  Receipt Date: 20141008
  Transmission Date: 20150528
  Serious: Yes (Life-Threatening)
  Sender: FDA-Public Use
  Company Number: None

PATIENT
  Age: 82 Year
  Sex: Male
  Weight: 87 kg

DRUGS (1)
  1. RAPISCAN [Suspect]
     Active Substance: REGADENOSON
     Indication: CARDIAC STRESS TEST
     Dosage: SLOWLY
     Route: 042
     Dates: start: 20130423

REACTIONS (2)
  - Atrioventricular block complete [None]
  - Dyspnoea [None]

NARRATIVE: CASE EVENT DATE: 20130423
